FAERS Safety Report 22538068 (Version 1)
Quarter: 2023Q2

REPORT INFORMATION
  Report Type: Spontaneous
  Country: CA (occurrence: CA)
  Receive Date: 20230608
  Receipt Date: 20230608
  Transmission Date: 20230722
  Serious: Yes (Other)
  Sender: FDA-Public Use
  Company Number: CA-CELLTRION INC.-2023CA010213

PATIENT

DRUGS (3)
  1. INFLECTRA [Suspect]
     Active Substance: INFLIXIMAB-DYYB
     Indication: Crohn^s disease
     Dosage: 450 MG Q 0, 2, 6 WEEKS, THEN EVERY 8 WEEKS
  2. INFLECTRA [Suspect]
     Active Substance: INFLIXIMAB-DYYB
     Dosage: 450 MG Q 0, 2, 6 WEEKS, THEN EVERY 8 WEEKS
     Dates: start: 20230504
  3. INFLECTRA [Suspect]
     Active Substance: INFLIXIMAB-DYYB
     Dosage: 500 MG, LOADING DOSE 3OUT OF 3
     Route: 042
     Dates: start: 20230601

REACTIONS (9)
  - Nausea [Unknown]
  - Urticaria [Unknown]
  - Back pain [Unknown]
  - Vomiting [Recovered/Resolved]
  - Chest pain [Not Recovered/Not Resolved]
  - Headache [Not Recovered/Not Resolved]
  - Pyrexia [Not Recovered/Not Resolved]
  - Chills [Not Recovered/Not Resolved]
  - Hypertension [Unknown]

NARRATIVE: CASE EVENT DATE: 20230504
